FAERS Safety Report 6154849-8 (Version None)
Quarter: 2009Q2

REPORT INFORMATION
  Report Type: 
  Country: None (occurrence: None)
  Receive Date: 20090414
  Receipt Date: 20090402
  Transmission Date: 20091009
  Serious: Yes (Hospitalization)
  Sender: FDA-Public Use
  Company Number: KR-PFIZER INC-2009194183

PATIENT

DRUGS (2)
  1. PROVERA [Suspect]
     Indication: OFF LABEL USE
     Dosage: UNK
     Route: 048
  2. PROVERA [Suspect]
     Indication: BREAST INFLAMMATION

REACTIONS (2)
  - BREAST INFLAMMATION [None]
  - CONDITION AGGRAVATED [None]
